FAERS Safety Report 15967033 (Version 5)
Quarter: 2021Q3

REPORT INFORMATION
  Report Type: Report from Study
  Country: JP (occurrence: JP)
  Receive Date: 20190215
  Receipt Date: 20210727
  Transmission Date: 20211014
  Serious: Yes (Other)
  Sender: FDA-Public Use
  Company Number: JP-JNJFOC-20190212618

PATIENT
  Age: 66 Year
  Sex: Female
  Weight: 57.5 kg

DRUGS (66)
  1. DARZALEX [Suspect]
     Active Substance: DARATUMUMAB
     Route: 041
     Dates: start: 20180315, end: 20180315
  2. DARZALEX [Suspect]
     Active Substance: DARATUMUMAB
     Route: 041
     Dates: start: 20180614, end: 20180614
  3. LENALIDOMIDE HYDRATE [Suspect]
     Active Substance: LENALIDOMIDE
     Route: 048
     Dates: start: 20180322, end: 20180411
  4. DEXAMETHASONE. [Suspect]
     Active Substance: DEXAMETHASONE
     Route: 065
     Dates: start: 20180426, end: 20180427
  5. DEXAMETHASONE. [Suspect]
     Active Substance: DEXAMETHASONE
     Route: 065
     Dates: start: 20180501, end: 20180502
  6. DEXAMETHASONE. [Suspect]
     Active Substance: DEXAMETHASONE
     Route: 065
     Dates: start: 20180628, end: 20180629
  7. DEXAMETHASONE. [Suspect]
     Active Substance: DEXAMETHASONE
     Route: 065
     Dates: start: 20180712, end: 20180713
  8. DEXAMETHASONE. [Suspect]
     Active Substance: DEXAMETHASONE
     Route: 065
     Dates: start: 20180920, end: 20180921
  9. DEXAMETHASONE. [Suspect]
     Active Substance: DEXAMETHASONE
     Route: 065
     Dates: start: 20181011, end: 20181012
  10. DEXAMETHASONE. [Suspect]
     Active Substance: DEXAMETHASONE
     Route: 065
     Dates: start: 20181129, end: 20181130
  11. DEXAMETHASONE. [Suspect]
     Active Substance: DEXAMETHASONE
     Route: 065
     Dates: start: 20181206, end: 20181207
  12. DEXAMETHASONE. [Suspect]
     Active Substance: DEXAMETHASONE
     Route: 065
     Dates: start: 20181227, end: 20181228
  13. DARZALEX [Suspect]
     Active Substance: DARATUMUMAB
     Route: 041
     Dates: start: 20180712, end: 20180712
  14. DARZALEX [Suspect]
     Active Substance: DARATUMUMAB
     Route: 041
     Dates: start: 20181122, end: 20181122
  15. LENALIDOMIDE HYDRATE [Suspect]
     Active Substance: LENALIDOMIDE
     Route: 048
     Dates: start: 20181220, end: 20190111
  16. DEXAMETHASONE. [Suspect]
     Active Substance: DEXAMETHASONE
     Route: 065
     Dates: start: 20180621, end: 20180622
  17. DEXAMETHASONE. [Suspect]
     Active Substance: DEXAMETHASONE
     Route: 065
     Dates: start: 20180816, end: 20180817
  18. DEXAMETHASONE. [Suspect]
     Active Substance: DEXAMETHASONE
     Route: 065
     Dates: start: 20181122, end: 20181123
  19. DARZALEX [Suspect]
     Active Substance: DARATUMUMAB
     Route: 041
     Dates: start: 20180419, end: 20180419
  20. DARZALEX [Suspect]
     Active Substance: DARATUMUMAB
     Route: 041
     Dates: start: 20180517, end: 20180517
  21. DARZALEX [Suspect]
     Active Substance: DARATUMUMAB
     Route: 041
     Dates: start: 20180628, end: 20180628
  22. LENALIDOMIDE HYDRATE [Suspect]
     Active Substance: LENALIDOMIDE
     Indication: PLASMA CELL MYELOMA
     Route: 048
     Dates: start: 20180117, end: 20180205
  23. LENALIDOMIDE HYDRATE [Suspect]
     Active Substance: LENALIDOMIDE
     Route: 048
     Dates: start: 20180419, end: 20180509
  24. DEXAMETHASONE. [Suspect]
     Active Substance: DEXAMETHASONE
     Route: 065
     Dates: start: 20180315, end: 20180315
  25. DEXAMETHASONE. [Suspect]
     Active Substance: DEXAMETHASONE
     Route: 065
     Dates: start: 20180517, end: 20180518
  26. DEXAMETHASONE. [Suspect]
     Active Substance: DEXAMETHASONE
     Route: 065
     Dates: start: 20180719, end: 20180720
  27. DEXAMETHASONE. [Suspect]
     Active Substance: DEXAMETHASONE
     Route: 065
     Dates: start: 20181004, end: 20181005
  28. DEXAMETHASONE. [Suspect]
     Active Substance: DEXAMETHASONE
     Route: 065
     Dates: start: 20190103, end: 20190104
  29. DARZALEX [Suspect]
     Active Substance: DARATUMUMAB
     Route: 041
     Dates: start: 20180809, end: 20180809
  30. LENALIDOMIDE HYDRATE [Suspect]
     Active Substance: LENALIDOMIDE
     Route: 048
     Dates: start: 20180222, end: 20180307
  31. LENALIDOMIDE HYDRATE [Suspect]
     Active Substance: LENALIDOMIDE
     Route: 048
     Dates: start: 20181122, end: 20181212
  32. DEXAMETHASONE. [Suspect]
     Active Substance: DEXAMETHASONE
     Route: 065
     Dates: start: 20180222, end: 20180222
  33. DEXAMETHASONE. [Suspect]
     Active Substance: DEXAMETHASONE
     Route: 065
     Dates: start: 20180524, end: 20180525
  34. DEXAMETHASONE. [Suspect]
     Active Substance: DEXAMETHASONE
     Route: 065
     Dates: start: 20180823, end: 20180824
  35. AMBROXOL HYDROCHLORIDE [Concomitant]
     Active Substance: AMBROXOL HYDROCHLORIDE
     Indication: PRODUCTIVE COUGH
     Route: 048
     Dates: start: 20180301, end: 20180307
  36. DARZALEX [Suspect]
     Active Substance: DARATUMUMAB
     Route: 041
     Dates: start: 20180531, end: 20180531
  37. DARZALEX [Suspect]
     Active Substance: DARATUMUMAB
     Route: 041
     Dates: start: 20180920, end: 20180920
  38. DEXAMETHASONE. [Suspect]
     Active Substance: DEXAMETHASONE
     Route: 065
     Dates: start: 20180322, end: 20180322
  39. DEXAMETHASONE. [Suspect]
     Active Substance: DEXAMETHASONE
     Route: 065
     Dates: start: 20180802, end: 20180803
  40. FEXOFENADINE HYDROCHLORIDE. [Concomitant]
     Active Substance: FEXOFENADINE HYDROCHLORIDE
     Indication: ERYTHEMA
     Route: 048
     Dates: start: 20180308, end: 20180321
  41. DARZALEX [Suspect]
     Active Substance: DARATUMUMAB
     Route: 041
     Dates: start: 20180124, end: 20180124
  42. DARZALEX [Suspect]
     Active Substance: DARATUMUMAB
     Route: 041
     Dates: start: 20180222, end: 20180222
  43. LENALIDOMIDE HYDRATE [Suspect]
     Active Substance: LENALIDOMIDE
     Route: 048
     Dates: start: 20180809, end: 20180829
  44. DEXAMETHASONE. [Suspect]
     Active Substance: DEXAMETHASONE
     Route: 065
     Dates: start: 20180131, end: 20180131
  45. DEXAMETHASONE. [Suspect]
     Active Substance: DEXAMETHASONE
     Route: 065
     Dates: start: 20180419, end: 20180420
  46. DEXAMETHASONE. [Suspect]
     Active Substance: DEXAMETHASONE
     Route: 065
     Dates: start: 20180508, end: 20180509
  47. DEXAMETHASONE. [Suspect]
     Active Substance: DEXAMETHASONE
     Route: 065
     Dates: start: 20180607, end: 20180608
  48. DEXAMETHASONE. [Suspect]
     Active Substance: DEXAMETHASONE
     Route: 065
     Dates: start: 20180614, end: 20180615
  49. DEXAMETHASONE. [Suspect]
     Active Substance: DEXAMETHASONE
     Route: 065
     Dates: start: 20181220, end: 20181221
  50. HUSTAZOL [Concomitant]
     Indication: PRODUCTIVE COUGH
     Route: 048
     Dates: start: 20180301, end: 20180307
  51. DARZALEX [Suspect]
     Active Substance: DARATUMUMAB
     Indication: PLASMA CELL MYELOMA
     Route: 041
     Dates: start: 20180117, end: 20180117
  52. DARZALEX [Suspect]
     Active Substance: DARATUMUMAB
     Route: 041
     Dates: start: 20180131, end: 20180131
  53. DARZALEX [Suspect]
     Active Substance: DARATUMUMAB
     Route: 041
     Dates: start: 20181220, end: 20181220
  54. DEXAMETHASONE. [Suspect]
     Active Substance: DEXAMETHASONE
     Indication: PLASMA CELL MYELOMA
     Route: 065
     Dates: start: 20180117, end: 20180117
  55. DEXAMETHASONE. [Suspect]
     Active Substance: DEXAMETHASONE
     Route: 065
     Dates: start: 20180124, end: 20180124
  56. DEXAMETHASONE. [Suspect]
     Active Substance: DEXAMETHASONE
     Route: 065
     Dates: start: 20180906, end: 20180907
  57. DARZALEX [Suspect]
     Active Substance: DARATUMUMAB
     Route: 041
     Dates: start: 20180322, end: 20180322
  58. LENALIDOMIDE HYDRATE [Suspect]
     Active Substance: LENALIDOMIDE
     Route: 048
     Dates: start: 20180517, end: 20180606
  59. LENALIDOMIDE HYDRATE [Suspect]
     Active Substance: LENALIDOMIDE
     Route: 048
     Dates: start: 20180614, end: 20180627
  60. LENALIDOMIDE HYDRATE [Suspect]
     Active Substance: LENALIDOMIDE
     Route: 048
     Dates: start: 20180712, end: 20180801
  61. LENALIDOMIDE HYDRATE [Suspect]
     Active Substance: LENALIDOMIDE
     Route: 048
     Dates: start: 20180920, end: 20181010
  62. DEXAMETHASONE. [Suspect]
     Active Substance: DEXAMETHASONE
     Route: 065
     Dates: start: 20180531, end: 20180601
  63. DEXAMETHASONE. [Suspect]
     Active Substance: DEXAMETHASONE
     Route: 065
     Dates: start: 20180726, end: 20180727
  64. DEXAMETHASONE. [Suspect]
     Active Substance: DEXAMETHASONE
     Route: 065
     Dates: start: 20180809, end: 20180810
  65. DEXAMETHASONE. [Suspect]
     Active Substance: DEXAMETHASONE
     Route: 065
     Dates: start: 20180927, end: 20180928
  66. DEXAMETHASONE. [Suspect]
     Active Substance: DEXAMETHASONE
     Route: 065
     Dates: start: 20181213, end: 20181214

REACTIONS (7)
  - Erythema [Recovering/Resolving]
  - Neutrophil count decreased [Recovered/Resolved]
  - Back pain [Recovering/Resolving]
  - White blood cell count decreased [Recovered/Resolved]
  - Productive cough [Recovering/Resolving]
  - Diabetes mellitus [Recovered/Resolved]
  - Rash [Recovered/Resolved]

NARRATIVE: CASE EVENT DATE: 20180201
